FAERS Safety Report 6802738-5 (Version None)
Quarter: 2010Q2

REPORT INFORMATION
  Report Type: 
  Country: None (occurrence: None)
  Receive Date: 20100628
  Receipt Date: 20100622
  Transmission Date: 20101027
  Serious: Yes (Life-Threatening)
  Sender: FDA-Public Use
  Company Number: FR-ASTRAZENECA-2010SE29114

PATIENT
  Age: 353 Day
  Sex: Male
  Weight: 8.9 kg

DRUGS (5)
  1. DIPRIVAN [Suspect]
     Indication: GENERAL ANAESTHESIA
     Route: 042
     Dates: start: 20100415, end: 20100415
  2. TRACRIUM [Suspect]
     Indication: GENERAL ANAESTHESIA
     Route: 042
     Dates: start: 20100415, end: 20100415
  3. ATROPINE [Suspect]
     Dosage: 150 (UNIT NOT SPECIFIED)
     Route: 042
     Dates: start: 20100415, end: 20100415
  4. HEXABRIX [Suspect]
     Dates: start: 20100415, end: 20100415
  5. SUFENTA PRESERVATIVE FREE [Suspect]
     Indication: GENERAL ANAESTHESIA
     Dosage: 2.5 (UNIT NOT SPECIFIED)
     Route: 042
     Dates: start: 20100415, end: 20100415

REACTIONS (5)
  - BRONCHOSPASM [None]
  - GENERALISED ERYTHEMA [None]
  - HYPOTENSION [None]
  - TACHYCARDIA [None]
  - VASOPLEGIA SYNDROME [None]
